FAERS Safety Report 5734127-9 (Version None)
Quarter: 2008Q2

REPORT INFORMATION
  Report Type: 
  Country: None (occurrence: None)
  Receive Date: 20080509
  Receipt Date: 20080429
  Transmission Date: 20081010
  Serious: Yes (Congenital Anomaly)
  Sender: FDA-Public Use
  Company Number: PFIZER INC-2008039414

PATIENT
  Sex: Male

DRUGS (2)
  1. ATARAX [Suspect]
     Indication: ANXIETY
     Route: 064
  2. LEXOMIL [Concomitant]
     Indication: ANXIETY
     Route: 064

REACTIONS (2)
  - DRUG EXPOSURE DURING PREGNANCY [None]
  - HYPOSPADIAS [None]
